FAERS Safety Report 14837078 (Version 1)
Quarter: 2018Q2

REPORT INFORMATION
  Report Type: Spontaneous
  Country: FR (occurrence: FR)
  Receive Date: 20180502
  Receipt Date: 20180502
  Transmission Date: 20180711
  Serious: Yes (Other)
  Sender: FDA-Public Use
  Company Number: FR-MERCK KGAA-2046996

PATIENT
  Age: 54 Year

DRUGS (1)
  1. NOVOTHYROX [Suspect]
     Active Substance: LEVOTHYROXINE SODIUM
     Indication: AUTOIMMUNE THYROIDITIS
     Dates: start: 201706

REACTIONS (21)
  - Muscle spasms [None]
  - Asocial behaviour [None]
  - Stress [None]
  - Aggression [None]
  - Mental status changes [None]
  - Crying [None]
  - Personal relationship issue [None]
  - Social problem [None]
  - Negative thoughts [None]
  - Impaired work ability [None]
  - Anger [None]
  - Middle insomnia [None]
  - Mood altered [None]
  - Palpitations [None]
  - Mental impairment [None]
  - Judgement impaired [None]
  - Fatigue [None]
  - Weight increased [None]
  - Asthenia [None]
  - Anxiety [None]
  - Impaired work ability [None]

NARRATIVE: CASE EVENT DATE: 2017
